FAERS Safety Report 7795539-5 (Version None)
Quarter: 2011Q4

REPORT INFORMATION
  Report Type: 
  Country: None (occurrence: None)
  Receive Date: 20111004
  Receipt Date: 20110920
  Transmission Date: 20120403
  Serious: Yes (Other)
  Sender: FDA-Public Use
  Company Number: US-BAYER-2011-032904

PATIENT
  Age: 24 Year
  Sex: Female
  Weight: 67.574 kg

DRUGS (5)
  1. CELEXA [Concomitant]
     Indication: DEPRESSION
  2. MIRALAX [Concomitant]
  3. YAZ [Suspect]
     Indication: ORAL CONTRACEPTION
     Dosage: UNK UNK, QD
     Route: 048
     Dates: start: 20090101
  4. IRON [Concomitant]
  5. PROCTOFOAM [Concomitant]

REACTIONS (6)
  - CHOLECYSTECTOMY [None]
  - PANCREATITIS [None]
  - INJURY [None]
  - CHOLECYSTITIS CHRONIC [None]
  - INTESTINAL OBSTRUCTION [None]
  - PAIN [None]
